FAERS Safety Report 10411292 (Version 1)
Quarter: 2014Q3

REPORT INFORMATION
  Report Type: Spontaneous
  Country: TW (occurrence: TW)
  Receive Date: 20140826
  Receipt Date: 20140826
  Transmission Date: 20150326
  Serious: Yes (Other)
  Sender: FDA-Public Use
  Company Number: TW-ALLERGAN-1418397US

PATIENT
  Age: 44 Year
  Sex: Female
  Weight: 59 kg

DRUGS (2)
  1. OZURDEX [Suspect]
     Active Substance: DEXAMETHASONE
     Indication: EALES^ DISEASE
  2. OZURDEX [Suspect]
     Active Substance: DEXAMETHASONE
     Indication: RETINAL VASCULITIS
     Dosage: 0.7 MG, SINGLE
     Route: 031
     Dates: start: 20140503, end: 20140503

REACTIONS (3)
  - Visual acuity reduced [Unknown]
  - Off label use [Unknown]
  - Vitreal cells [Unknown]
